FAERS Safety Report 19554509 (Version 1)
Quarter: 2021Q3

REPORT INFORMATION
  Report Type: Report from Study
  Country: JP (occurrence: JP)
  Receive Date: 20210715
  Receipt Date: 20210715
  Transmission Date: 20211014
  Serious: Yes (Other)
  Sender: FDA-Public Use
  Company Number: JP-ACCORD-231845

PATIENT

DRUGS (3)
  1. ACETYLSALICYLIC ACID [Suspect]
     Active Substance: ASPIRIN
     Indication: ANTIPLATELET THERAPY
  2. HEPARIN [Concomitant]
     Active Substance: HEPARIN SODIUM
     Dosage: 10,000 UNITS FOR 2 DAYS
     Route: 042
  3. CLOPIDOGREL [Suspect]
     Active Substance: CLOPIDOGREL BISULFATE
     Indication: ANTIPLATELET THERAPY

REACTIONS (2)
  - Genital haemorrhage [Unknown]
  - Haemoglobin decreased [Unknown]
